FAERS Safety Report 4440516-5 (Version None)
Quarter: 2004Q3

REPORT INFORMATION
  Report Type: 
  Country: None (occurrence: None)
  Receive Date: 20040903
  Receipt Date: 20040825
  Transmission Date: 20050211
  Serious: Yes (Other)
  Sender: FDA-Public Use
  Company Number: US-JNJFOC-20040808986

PATIENT
  Sex: Male
  Weight: 81.65 kg

DRUGS (16)
  1. REMICADE [Suspect]
     Indication: RHEUMATOID ARTHRITIS
     Route: 042
  2. COLAZAL [Concomitant]
     Dates: start: 20040801
  3. SPIRONOLACTONE [Concomitant]
  4. LISINOPRIL [Concomitant]
  5. FUROSEMIDE [Concomitant]
  6. PREDNISONE [Concomitant]
  7. POTASSIUM [Concomitant]
  8. VITAMIN [Concomitant]
  9. SIMVASTATIN [Concomitant]
  10. WARFARIN SODIUM [Concomitant]
  11. FLOMAX [Concomitant]
  12. LEVATHYROXINE [Concomitant]
  13. FOLIC ACID [Concomitant]
  14. METHOTREXATE SODIUM [Concomitant]
     Dates: end: 20040701
  15. TRICOR [Concomitant]
  16. DIGOXIN [Concomitant]

REACTIONS (1)
  - COLITIS ULCERATIVE [None]
